FAERS Safety Report 5796529-4 (Version None)
Quarter: 2008Q3

REPORT INFORMATION
  Report Type: 
  Country: None (occurrence: None)
  Receive Date: 20080701
  Receipt Date: 20080620
  Transmission Date: 20090109
  Serious: Yes (Hospitalization, Other)
  Sender: FDA-Public Use
  Company Number: US-AMGEN-STX278843

PATIENT
  Sex: Male
  Weight: 110.8 kg

DRUGS (26)
  1. ENBREL [Suspect]
     Indication: RHEUMATOID ARTHRITIS
     Route: 058
     Dates: start: 19981201, end: 20080501
  2. INFLUENZA VIRUS VACCINE [Concomitant]
     Route: 065
     Dates: start: 20071101, end: 20071101
  3. COUMADIN [Concomitant]
     Route: 065
  4. GLUCOPHAGE [Concomitant]
     Route: 065
     Dates: start: 20041202
  5. CELEBREX [Concomitant]
     Route: 065
     Dates: end: 20060710
  6. IMDUR [Concomitant]
     Route: 065
  7. ZANTAC [Concomitant]
     Route: 065
  8. TOPROL-XL [Concomitant]
     Route: 065
  9. TRAZODONE HCL [Concomitant]
     Route: 065
  10. ASPIRIN [Concomitant]
     Route: 065
  11. TYLENOL [Concomitant]
     Route: 065
  12. ACETAMINOPHEN, BUTALBITAL + CAFFEINE [Concomitant]
     Route: 065
  13. FLONASE [Concomitant]
     Route: 065
     Dates: start: 20050509
  14. ALLEGRA [Concomitant]
     Route: 065
     Dates: start: 20050509
  15. PROTONIX [Concomitant]
     Route: 065
     Dates: start: 20051229
  16. ACTOS [Concomitant]
     Dates: start: 20051229
  17. NORTRIPTYLINE HCL [Concomitant]
     Route: 065
     Dates: start: 20051229, end: 20060422
  18. LEXAPRO [Concomitant]
     Route: 065
  19. LOVENOX [Concomitant]
     Route: 065
     Dates: start: 20060706
  20. UNSPECIFIED MEDICATION [Concomitant]
     Route: 045
  21. NASONEX [Concomitant]
     Route: 045
  22. PLAVIX [Concomitant]
  23. TEGRETOL [Concomitant]
     Route: 065
     Dates: end: 20061001
  24. LASIX [Concomitant]
     Dates: start: 20071227
  25. VITAMIN K TAB [Concomitant]
     Route: 048
     Dates: start: 20080130
  26. LORTAB [Concomitant]
     Route: 065
     Dates: start: 20080101

REACTIONS (42)
  - ADRENAL MASS [None]
  - ANOREXIA [None]
  - ARTHRITIS [None]
  - ASTHENIA [None]
  - CEREBROVASCULAR ACCIDENT [None]
  - CHEST PAIN [None]
  - COLON ADENOMA [None]
  - CONTRAST MEDIA REACTION [None]
  - DEEP VEIN THROMBOSIS [None]
  - DEPRESSION [None]
  - DIARRHOEA [None]
  - DYSPNOEA [None]
  - FUNGAL SKIN INFECTION [None]
  - HAEMOPTYSIS [None]
  - HAEMORRHOIDAL HAEMORRHAGE [None]
  - HEADACHE [None]
  - HEPATIC CIRRHOSIS [None]
  - HODGKIN'S DISEASE [None]
  - HYPERPARATHYROIDISM PRIMARY [None]
  - HYPERTENSION [None]
  - HYPOAESTHESIA [None]
  - IIIRD NERVE PARALYSIS [None]
  - INTERSTITIAL LUNG DISEASE [None]
  - LIMB DISCOMFORT [None]
  - MASS [None]
  - NASAL CONGESTION [None]
  - NOCTURIA [None]
  - OEDEMA PERIPHERAL [None]
  - OROPHARYNGEAL PAIN [None]
  - PARAESTHESIA [None]
  - POLLAKIURIA [None]
  - PULMONARY MASS [None]
  - RECTAL HAEMORRHAGE [None]
  - SPLENOMEGALY [None]
  - THROMBOPHLEBITIS [None]
  - THYROID CYST [None]
  - TREMOR [None]
  - UPPER RESPIRATORY TRACT INFECTION [None]
  - URINARY TRACT INFECTION FUNGAL [None]
  - VARICOSE VEIN [None]
  - VITAMIN B12 DEFICIENCY [None]
  - WEIGHT DECREASED [None]
